FAERS Safety Report 19447656 (Version 1)
Quarter: 2021Q2

REPORT INFORMATION
  Report Type: Spontaneous
  Country: US (occurrence: US)
  Receive Date: 20210622
  Receipt Date: 20210622
  Transmission Date: 20210717
  Serious: No
  Sender: FDA-Public Use
  Company Number: US-THERAPEUTICSMD-2021TMD01487

PATIENT
  Sex: Female

DRUGS (2)
  1. IMVEXXY [Suspect]
     Active Substance: ESTRADIOL
     Dosage: UNK
  2. UNSPECIFIED ANTIBIOTICS [Suspect]
     Active Substance: UNSPECIFIED INGREDIENT
     Indication: NASAL SEPTAL OPERATION

REACTIONS (2)
  - Nasal septum deviation [Unknown]
  - Vulvovaginal mycotic infection [Not Recovered/Not Resolved]
